FAERS Safety Report 6601956-9 (Version None)
Quarter: 2010Q1

REPORT INFORMATION
  Report Type: 
  Country: None (occurrence: None)
  Receive Date: 20100225
  Receipt Date: 20090707
  Transmission Date: 20100710
  Serious: Yes (Hospitalization)
  Sender: FDA-Public Use
  Company Number: US-MERCK-0906USA05244

PATIENT
  Age: 15 Year
  Sex: Female

DRUGS (7)
  1. FOSAMAX [Suspect]
     Indication: FRACTURE
     Route: 048
     Dates: end: 20090501
  2. AMANTADINE HYDROCHLORIDE [Concomitant]
     Route: 065
  3. CALCIUM (UNSPECIFIED) [Concomitant]
     Route: 065
  4. TETRABENAZINE [Concomitant]
     Route: 065
  5. KLONOPIN [Concomitant]
     Route: 065
  6. GASTROINTESTINAL PREPARATIONS (UNSPECIFIED) [Concomitant]
     Route: 065
  7. PRILOSEC [Concomitant]
     Route: 048

REACTIONS (2)
  - DRUG ADMINISTRATION ERROR [None]
  - NERVOUS SYSTEM DISORDER [None]
